FAERS Safety Report 5751830-5 (Version None)
Quarter: 2008Q2

REPORT INFORMATION
  Report Type: 
  Country: None (occurrence: None)
  Receive Date: 20080527
  Receipt Date: 20080516
  Transmission Date: 20081010
  Serious: Yes (Other)
  Sender: FDA-Public Use
  Company Number: 2008BI003478

PATIENT
  Age: 58 Year
  Sex: Female

DRUGS (12)
  1. AVONEX [Suspect]
     Indication: MULTIPLE SCLEROSIS
     Dosage: 30 UG; QW; IM
     Route: 030
     Dates: start: 19970101
  2. BUTALBITAL [Concomitant]
  3. SERTRALINE [Concomitant]
  4. PREMARIN [Concomitant]
  5. ZOCOR [Concomitant]
  6. RYNATAN [Concomitant]
  7. RHINOCORT [Concomitant]
  8. DEXAMETHASONE TAB [Concomitant]
  9. BENZONATATE [Concomitant]
  10. DIFLUCAN [Concomitant]
  11. NIZORAL [Concomitant]
  12. TERBINAFINE HCL [Concomitant]

REACTIONS (1)
  - CHRONIC LYMPHOCYTIC LEUKAEMIA STAGE 0 [None]
